FAERS Safety Report 4294997-0 (Version None)
Quarter: 2004Q1

REPORT INFORMATION
  Report Type: 
  Country: None (occurrence: None)
  Receive Date: 20040212
  Receipt Date: 20040212
  Transmission Date: 20041129
  Serious: Yes (Hospitalization)
  Sender: FDA-Public Use
  Company Number: None

PATIENT
  Age: 87 Year
  Sex: Male
  Weight: 72.8 kg

DRUGS (3)
  1. CLOPIDOGREL BISULFATE [Suspect]
     Indication: DISEASE RECURRENCE
     Dosage: 75 MG , DAILY , PO
     Route: 048
     Dates: start: 20031117, end: 20031211
  2. CLOPIDOGREL BISULFATE [Suspect]
     Indication: TRANSIENT ISCHAEMIC ATTACK
     Dosage: 75 MG , DAILY , PO
     Route: 048
     Dates: start: 20031117, end: 20031211
  3. ASPIRIN [Concomitant]

REACTIONS (1)
  - GASTROINTESTINAL HAEMORRHAGE [None]
